FAERS Safety Report 24281322 (Version 1)
Quarter: 2024Q3

REPORT INFORMATION
  Report Type: Spontaneous
  Country: US (occurrence: None)
  Receive Date: 20240830
  Receipt Date: 20240830
  Transmission Date: 20241017
  Serious: Yes (Hospitalization, Other)
  Sender: Public
  Company Number: None

PATIENT
  Age: 64 Year
  Sex: Female
  Weight: 72 kg

DRUGS (40)
  1. DIETARY SUPPLEMENT [Suspect]
     Active Substance: DIETARY SUPPLEMENT
     Indication: Myalgia
     Dosage: 1 TABLET DAILY ORAL
     Route: 048
     Dates: start: 20240111, end: 20240625
  2. DIETARY SUPPLEMENT [Suspect]
     Active Substance: DIETARY SUPPLEMENT
     Indication: Arthralgia
  3. DIETARY SUPPLEMENT [Suspect]
     Active Substance: DIETARY SUPPLEMENT
     Indication: Arthralgia
  4. DIETARY SUPPLEMENT [Suspect]
     Active Substance: DIETARY SUPPLEMENT
     Indication: Arthralgia
  5. DIETARY SUPPLEMENT [Suspect]
     Active Substance: DIETARY SUPPLEMENT
     Indication: Arthralgia
  6. NAPROXEN [Suspect]
     Active Substance: NAPROXEN
  7. CELEBREX [Suspect]
     Active Substance: CELECOXIB
  8. DICLOFENAC [Suspect]
     Active Substance: DICLOFENAC
  9. DEVICE [Concomitant]
     Active Substance: DEVICE
  10. LIOTHYRONINE [Concomitant]
  11. PLAVIX [Concomitant]
     Active Substance: CLOPIDOGREL BISULFATE
  12. NAPROXEN [Concomitant]
  13. ONDANSETRON [Concomitant]
  14. RANOLAZINE [Concomitant]
  15. PANTOPRAZOLE [Concomitant]
  16. MOUNJARO [Suspect]
     Active Substance: TIRZEPATIDE
  17. METFORMIN [Concomitant]
  18. EZETIMIBE [Concomitant]
  19. VASCEPA [Concomitant]
     Active Substance: ICOSAPENT ETHYL
  20. NITROSTAT [Concomitant]
     Active Substance: NITROGLYCERIN
  21. METOPROLOL [Concomitant]
  22. LEVOTHYROXINE [Concomitant]
  23. ISOSORBIDE DINITRATE [Concomitant]
     Active Substance: ISOSORBIDE DINITRATE
  24. DULOXETINE [Concomitant]
  25. BUSPIRONE [Concomitant]
  26. TRAZODONE [Concomitant]
  27. Organic Gymnema [Concomitant]
  28. THIAMINE [Concomitant]
  29. GINKGO [Concomitant]
     Active Substance: GINKGO
  30. BIOTIN [Concomitant]
  31. VITAMIN B2 [Concomitant]
     Active Substance: RIBOFLAVIN
  32. VITAMIN B12 [Concomitant]
     Active Substance: CYANOCOBALAMIN
  33. Pyridoxal-5-phosphate [Concomitant]
  34. ZINC [Concomitant]
     Active Substance: ZINC
  35. VITAMIN D3 [Concomitant]
     Active Substance: CHOLECALCIFEROL
  36. Probiotic [Concomitant]
  37. Hair/skin/nail vitamins [Concomitant]
  38. Pepcid [Concomitant]
  39. Aspirin [Concomitant]
  40. Zyrtec [Concomitant]

REACTIONS (7)
  - Headache [None]
  - Arthralgia [None]
  - Confusional state [None]
  - Dizziness [None]
  - Blood pressure increased [None]
  - Vision blurred [None]
  - Transient ischaemic attack [None]

NARRATIVE: CASE EVENT DATE: 20240619
